FAERS Safety Report 8446843-9 (Version None)
Quarter: 2012Q2

REPORT INFORMATION
  Report Type: 
  Country: None (occurrence: None)
  Receive Date: 20120612
  Receipt Date: 20120612
  Transmission Date: 20120825
  Serious: Yes (Other)
  Sender: FDA-Public Use
  Company Number: None

PATIENT
  Sex: Female

DRUGS (1)
  1. DICLOFENAC SODIUM [Suspect]
     Indication: PAIN
     Dosage: 75 MG, TWICE A DAY, PO
     Route: 048
     Dates: start: 20120606, end: 20120610

REACTIONS (5)
  - CHILLS [None]
  - INFLUENZA LIKE ILLNESS [None]
  - ABDOMINAL PAIN UPPER [None]
  - NAUSEA [None]
  - MUSCLE SPASMS [None]
